FAERS Safety Report 15030167 (Version 1)
Quarter: 2018Q2

REPORT INFORMATION
  Report Type: Spontaneous
  Country: US (occurrence: US)
  Receive Date: 20180619
  Receipt Date: 20180619
  Transmission Date: 20180711
  Serious: No
  Sender: FDA-Public Use
  Company Number: US-BEH-2018091757

PATIENT
  Age: 66 Year
  Sex: Male

DRUGS (1)
  1. HIZENTRA [Suspect]
     Active Substance: HUMAN IMMUNOGLOBULIN G
     Indication: HYPOGAMMAGLOBULINAEMIA
     Dosage: 8 G (40 ML), QW
     Route: 058
     Dates: start: 20180524

REACTIONS (2)
  - Infusion site nodule [Unknown]
  - Infusion site dryness [Unknown]

NARRATIVE: CASE EVENT DATE: 20180606
